FAERS Safety Report 10678288 (Version 1)
Quarter: 2014Q4

REPORT INFORMATION
  Report Type: Spontaneous
  Country: US (occurrence: US)
  Receive Date: 20141229
  Receipt Date: 20141229
  Transmission Date: 20150529
  Serious: No
  Sender: FDA-Public Use
  Company Number: US-009507513-1412USA011249

PATIENT
  Age: 60 Year
  Sex: Male

DRUGS (4)
  1. TEMOZOLOMIDE. [Suspect]
     Active Substance: TEMOZOLOMIDE
     Indication: NEUROENDOCRINE TUMOUR
     Dosage: 350 MG, DAYS 10-14, EVERY 4 WEEKS
     Route: 048
  2. CAPECITABINE. [Suspect]
     Active Substance: CAPECITABINE
     Indication: NEUROENDOCRINE TUMOUR
     Dosage: 1500MG TWICE DAILY, DAYS 1-14
  3. TEMOZOLOMIDE. [Suspect]
     Active Substance: TEMOZOLOMIDE
     Dosage: 10.5 MG, UNK
  4. CAPECITABINE. [Suspect]
     Active Substance: CAPECITABINE
     Dosage: 252 G, UNK

REACTIONS (1)
  - Myelodysplastic syndrome [Unknown]
